FAERS Safety Report 5534447-7 (Version None)
Quarter: 2007Q4

REPORT INFORMATION
  Report Type: 
  Country: None (occurrence: None)
  Receive Date: 20071205
  Receipt Date: 20071127
  Transmission Date: 20080405
  Serious: Yes (Hospitalization)
  Sender: FDA-Public Use
  Company Number: B0494930A

PATIENT
  Age: 60 Year
  Sex: Female
  Weight: 81 kg

DRUGS (2)
  1. NO THERAPY [Suspect]
     Indication: MALIGNANT NEOPLASM PROGRESSION
  2. TOPOTECAN [Suspect]
     Indication: CHEMOTHERAPY
     Dates: start: 20071017, end: 20071021

REACTIONS (1)
  - DEEP VEIN THROMBOSIS [None]
